FAERS Safety Report 14188037 (Version 1)
Quarter: 2017Q4

REPORT INFORMATION
  Report Type: Spontaneous
  Country: US (occurrence: None)
  Receive Date: 20171113
  Receipt Date: 20171113
  Transmission Date: 20180321
  Serious: Yes (Hospitalization)
  Sender: FDA-Public Use
  Company Number: None

PATIENT
  Age: 48 Year
  Sex: Male

DRUGS (13)
  1. FLUOXETINE [Concomitant]
     Active Substance: FLUOXETINE HYDROCHLORIDE
  2. REMERON [Concomitant]
     Active Substance: MIRTAZAPINE
  3. CIDOFOVIR. [Suspect]
     Active Substance: CIDOFOVIR
  4. ACYCLOVIR. [Concomitant]
     Active Substance: ACYCLOVIR
  5. METOCLOPRAM [Concomitant]
     Active Substance: METOCLOPRAMIDE
  6. BUSPIRONE [Concomitant]
     Active Substance: BUSPIRONE HYDROCHLORIDE
  7. LOVENOX [Concomitant]
     Active Substance: ENOXAPARIN SODIUM
  8. OMEPRAZOLE. [Concomitant]
     Active Substance: OMEPRAZOLE
  9. TACROLIMUS 0.5MG [Suspect]
     Active Substance: TACROLIMUS
     Indication: BONE MARROW TRANSPLANT
     Route: 048
     Dates: start: 20170329
  10. VALGANCICLOV [Concomitant]
  11. VITAMIN D3 [Concomitant]
     Active Substance: CHOLECALCIFEROL
  12. VORICONAZOLE. [Concomitant]
     Active Substance: VORICONAZOLE
  13. BECLOMETHASON POW DIPROPIO [Concomitant]

REACTIONS (2)
  - Rash [None]
  - Gastrointestinal disorder [None]
